FAERS Safety Report 17467184 (Version 3)
Quarter: 2020Q3

REPORT INFORMATION
  Report Type: Spontaneous
  Country: US (occurrence: US)
  Receive Date: 20200227
  Receipt Date: 20200727
  Transmission Date: 20201102
  Serious: Yes (Hospitalization, Other)
  Sender: FDA-Public Use
  Company Number: US-GLAXOSMITHKLINE-US2020031407

PATIENT
  Age: 81 Year
  Sex: Female

DRUGS (1)
  1. VENTOLIN HFA [Suspect]
     Active Substance: ALBUTEROL SULFATE
     Indication: PRODUCT USED FOR UNKNOWN INDICATION
     Dosage: 2 PUFF(S), Z (EVERY 3 TO 4 HOURS)
     Route: 055
     Dates: start: 2005

REACTIONS (6)
  - Chronic obstructive pulmonary disease [Unknown]
  - Pneumonia [Unknown]
  - Influenza [Unknown]
  - Dyspnoea [Unknown]
  - Atrial fibrillation [Unknown]
  - Cardiac failure [Unknown]

NARRATIVE: CASE EVENT DATE: 202002
